FAERS Safety Report 9305974 (Version 1)
Quarter: 2013Q2

REPORT INFORMATION
  Report Type: Spontaneous
  Country: BR (occurrence: BR)
  Receive Date: 20130523
  Receipt Date: 20130523
  Transmission Date: 20140414
  Serious: Yes (Other)
  Sender: FDA-Public Use
  Company Number: PHHY2013BR044221

PATIENT
  Sex: Male
  Weight: 84 kg

DRUGS (7)
  1. APRESOLIN [Suspect]
     Indication: HYPERTENSION
     Dosage: 1 DF (25MG), DAILY
     Route: 048
  2. HYDROCHLOROTHIAZIDE [Suspect]
     Indication: DIURETIC THERAPY
     Dosage: 1 DF,  PER DAY
     Route: 048
     Dates: start: 2008
  3. ATENSINA [Suspect]
     Indication: HYPERTENSION
     Dosage: 1 DF (25MG), DAILY
  4. ENALAPRIL [Concomitant]
     Indication: HYPERTENSION
     Dosage: 1 DF (25MG ENAL), PER DAY
     Route: 048
     Dates: start: 1995
  5. ATENOLOL [Concomitant]
     Indication: HEART RATE INCREASED
     Dosage: 1 DF, PER DAY
     Route: 048
     Dates: start: 2008
  6. AAS [Concomitant]
     Indication: ANTICOAGULANT THERAPY
     Dosage: 1 DF, PER DAY
     Route: 048
     Dates: start: 1995
  7. LIPTOR [Concomitant]
     Indication: ATHEROSCLEROSIS PROPHYLAXIS
     Dosage: 1 DF, PER DAY
     Route: 048
     Dates: start: 2008

REACTIONS (5)
  - Venous thrombosis [Recovered/Resolved]
  - Postoperative wound infection [Recovered/Resolved]
  - Fatigue [Not Recovered/Not Resolved]
  - Dry mouth [Not Recovered/Not Resolved]
  - Muscle spasms [Not Recovered/Not Resolved]
